FAERS Safety Report 22212529 (Version 4)
Quarter: 2023Q2

REPORT INFORMATION
  Report Type: Report from Study
  Country: US (occurrence: US)
  Receive Date: 20230414
  Receipt Date: 20230616
  Transmission Date: 20230722
  Serious: No
  Sender: FDA-Public Use
  Company Number: US-002147023-NVSC2023US084841

PATIENT
  Sex: Male

DRUGS (1)
  1. ENTRESTO [Suspect]
     Active Substance: SACUBITRIL\VALSARTAN
     Indication: Product used for unknown indication
     Dosage: 1 DOSAGE FORM, BID (97/103 MG)
     Route: 065

REACTIONS (7)
  - Pollakiuria [Unknown]
  - Cardiac valve disease [Unknown]
  - Heart rate decreased [Unknown]
  - Feeling cold [Unknown]
  - Asthenia [Unknown]
  - Cough [Unknown]
  - Blood pressure decreased [Unknown]
